FAERS Safety Report 18244145 (Version 4)
Quarter: 2020Q4

REPORT INFORMATION
  Report Type: Report from Study
  Country: MX (occurrence: MX)
  Receive Date: 20200908
  Receipt Date: 20201125
  Transmission Date: 20210113
  Serious: Yes (Other)
  Sender: FDA-Public Use
  Company Number: MX-JNJFOC-20200846478

PATIENT
  Sex: Female
  Weight: 58 kg

DRUGS (1)
  1. REMICADE [Suspect]
     Active Substance: INFLIXIMAB
     Indication: COLITIS ULCERATIVE
     Route: 042
     Dates: start: 20100129

REACTIONS (10)
  - Diarrhoea [Unknown]
  - Chronic disease [Unknown]
  - Oral herpes [Not Recovered/Not Resolved]
  - Nasopharyngitis [Unknown]
  - Hypertension [Unknown]
  - Papilloma viral infection [Unknown]
  - Osteoarthritis [Unknown]
  - Fibrosis [Unknown]
  - Cough [Unknown]
  - Diabetes mellitus [Unknown]

NARRATIVE: CASE EVENT DATE: 2020
